FAERS Safety Report 25843847 (Version 1)
Quarter: 2025Q3

REPORT INFORMATION
  Report Type: Spontaneous
  Country: US (occurrence: US)
  Receive Date: 20250924
  Receipt Date: 20250924
  Transmission Date: 20251020
  Serious: No
  Sender: AMGEN
  Company Number: US-AMGEN-USASL2025187004

PATIENT
  Age: 76 Year
  Sex: Female
  Weight: 53.89 kg

DRUGS (18)
  1. PREDNISONE [Suspect]
     Active Substance: PREDNISONE
     Indication: Product used for unknown indication
     Route: 065
  2. ARNUITY ELLIPTA [Concomitant]
     Active Substance: FLUTICASONE FUROATE
     Dosage: 200 MICROGRAM, QD
     Route: 065
  3. CELECOXIB [Concomitant]
     Active Substance: CELECOXIB
     Dosage: UNK UNK, QD, ( TAKE 1 CAPSULE BY MOUTH EVERY DAY WITH FOOD FOR 30 DAYS0
     Route: 048
  4. FERROUS SULFATE [Concomitant]
     Active Substance: FERROUS SULFATE
     Dosage: 325 MILLIGRAM, QD (1 TABLET ORALLY ONCE A DAY)
     Route: 048
  5. GABAPENTIN [Concomitant]
     Active Substance: GABAPENTIN
     Dosage: 625 MILLIGRAM, BID (TAKE 1 TABLET BY MOUTH TWICE A DAY //90 DAYS)
     Route: 048
  6. LORAZEPAM [Concomitant]
     Active Substance: LORAZEPAM
     Dosage: 1 MILLIGRAM, BID (TAKE 1/2 TABLET BY MOUTH TWICE A DAY //90 DAYS)
     Route: 048
  7. PANTOPRAZOLE SODIUM [Concomitant]
     Active Substance: PANTOPRAZOLE SODIUM
     Dosage: 40 MILLIGRAM, QD (1 TABLET 1/2 TO 1 HOUR BEFORE MORNING MEAL ORALLY ONCE A DAY)
     Route: 048
  8. CLOBETASOL PROPIONATE [Concomitant]
     Active Substance: CLOBETASOL PROPIONATE
     Dosage: 0.005 PERCENT, BID
  9. AMLODIPINE BESYLATE [Concomitant]
     Active Substance: AMLODIPINE BESYLATE
     Dosage: 5 MILLIGRAM, QD
     Route: 048
  10. LOSARTAN POTASSIUM [Concomitant]
     Active Substance: LOSARTAN POTASSIUM
     Dosage: 50 MILLIGRAM, QD
     Route: 048
  11. ROSUVASTATIN CALCIUM [Concomitant]
     Active Substance: ROSUVASTATIN CALCIUM
     Dosage: 20 MILLIGRAM, QD
     Route: 048
  12. TRIAMCINOLONE ACETONIDE [Concomitant]
     Active Substance: TRIAMCINOLONE ACETONIDE
     Dosage: UNK UNK, BID
     Route: 065
  13. FAMOTIDINE [Concomitant]
     Active Substance: FAMOTIDINE
     Dosage: 40 MILLIGRAM, QD (TAKE 1 TABLET BY MOUTH EVERYDAY AT BEDTIME)
     Route: 048
  14. ALBUTEROL SULFATE [Concomitant]
     Active Substance: ALBUTEROL SULFATE
     Dosage: UNK UNK, Q4H
  15. SERTRALINE HYDROCHLORIDE [Concomitant]
     Active Substance: SERTRALINE HYDROCHLORIDE
     Dosage: 50 MILLIGRAM, QD
  16. VITAMIN D3 [Concomitant]
     Active Substance: CHOLECALCIFEROL
     Dosage: 25 MICROGRAM, QD (1 CAPSULE ORALLY ONCE A DAY)
     Route: 048
  17. ASPIRIN [Concomitant]
     Active Substance: ASPIRIN
     Dosage: 81 MILLIGRAM, QD (1 TABLET ORALLY ONCE A DAY)
     Route: 065
  18. CYANOCOBALAMIN [Concomitant]
     Active Substance: CYANOCOBALAMIN
     Dosage: 1000 MICROGRAM PER MILLIGRAM, QMO
     Route: 065

REACTIONS (6)
  - Wrist fracture [Unknown]
  - Fall [Unknown]
  - Weight decreased [Unknown]
  - Dyspnoea [Unknown]
  - Balance disorder [Unknown]
  - Tooth disorder [Unknown]

NARRATIVE: CASE EVENT DATE: 20241101
